FAERS Safety Report 19688707 (Version 1)
Quarter: 2021Q3

REPORT INFORMATION
  Report Type: Spontaneous
  Country: US (occurrence: US)
  Receive Date: 20210811
  Receipt Date: 20210811
  Transmission Date: 20211014
  Serious: No
  Sender: FDA-Public Use
  Company Number: US-SA-2021SA264301

PATIENT

DRUGS (1)
  1. LEMTRADA [Suspect]
     Active Substance: ALEMTUZUMAB
     Indication: PSORIASIS
     Dosage: LEMTRADA 12 MG SDV 1.2 ML 1^S INFUSE 12 MG (1 VIAL) IV
     Route: 042

REACTIONS (1)
  - Off label use [Unknown]
